FAERS Safety Report 9301253 (Version 2)
Quarter: 2013Q2

REPORT INFORMATION
  Report Type: Spontaneous
  Country: US (occurrence: US)
  Receive Date: 20130521
  Receipt Date: 20130604
  Transmission Date: 20140414
  Serious: No
  Sender: FDA-Public Use
  Company Number: US-PFIZER INC-2013154865

PATIENT
  Age: 69 Year
  Sex: Male
  Weight: 81.63 kg

DRUGS (7)
  1. METHOTREXATE SODIUM [Suspect]
     Dosage: UNK
  2. FLEXERIL [Suspect]
     Dosage: UNK
  3. FOSAMAX [Suspect]
     Dosage: UNK
  4. ARAVA [Suspect]
     Dosage: UNK
  5. RELAFEN [Suspect]
     Dosage: UNK
  6. PLAQUENIL [Suspect]
     Dosage: UNK
  7. SIMPONI [Suspect]
     Dosage: UNK

REACTIONS (1)
  - Drug hypersensitivity [Unknown]
